FAERS Safety Report 7972487 (Version 3)
Quarter: 2014Q1

REPORT INFORMATION
  Report Type: Spontaneous
  Country: US (occurrence: US)
  Receive Date: 20110603
  Receipt Date: 20140203
  Transmission Date: 20141002
  Serious: Yes (Hospitalization)
  Sender: FDA-Public Use
  Company Number: US-BAYER-2010-002119

PATIENT
  Age: 40 Year
  Sex: Female
  Weight: 63.95 kg

DRUGS (4)
  1. YASMIN [Suspect]
     Indication: CONTRACEPTION
     Dosage: UNK
     Dates: start: 200603, end: 200808
  2. OCELLA [Suspect]
     Indication: CONTRACEPTION
     Dosage: UNK
     Dates: start: 200603, end: 200808
  3. HYOSCYAMINE [Concomitant]
  4. PHENERGAN [Concomitant]

REACTIONS (1)
  - Cholelithiasis [None]
